FAERS Safety Report 5892413-6 (Version None)
Quarter: 2008Q3

REPORT INFORMATION
  Report Type: 
  Country: None (occurrence: None)
  Receive Date: 20080923
  Receipt Date: 20080908
  Transmission Date: 20090109
  Serious: Yes (Hospitalization)
  Sender: FDA-Public Use
  Company Number: JP-PURDUE-MAG_2008_0000708

PATIENT
  Age: 63 Year
  Sex: Male
  Weight: 63 kg

DRUGS (11)
  1. MORPHINE SULFATE CR TABLET 30 MG [Suspect]
     Indication: CANCER PAIN
     Dosage: 30 MG, DAILY
     Route: 048
     Dates: start: 20070706, end: 20070708
  2. BENZALIN [Concomitant]
     Indication: INSOMNIA
     Dosage: 5 MG, DAILY
     Route: 048
     Dates: end: 20070708
  3. AMOBAN [Concomitant]
     Indication: INSOMNIA
     Dosage: 7.5 MG, DAILY
     Route: 048
     Dates: end: 20070708
  4. MYSLEE [Concomitant]
     Indication: INSOMNIA
     Dosage: 5 MG, DAILY
     Route: 048
     Dates: start: 20070619, end: 20070708
  5. MOBIC [Concomitant]
     Indication: ABDOMINAL PAIN
     Dosage: 10 MG, DAILY
     Route: 048
     Dates: start: 20070510, end: 20070708
  6. RABEPRAZOLE SODIUM [Concomitant]
     Dosage: 20 MG, DAILY
     Route: 048
     Dates: end: 20070708
  7. NORVASC [Concomitant]
     Dosage: 5 MG, DAILY
     Route: 048
     Dates: end: 20070708
  8. INDERAL [Concomitant]
     Dosage: 90 MG, DAILY
     Route: 048
     Dates: end: 20070708
  9. LASIX [Concomitant]
     Dosage: 40 MG, DAILY
     Route: 048
     Dates: end: 20070708
  10. ALDACTONE [Concomitant]
     Dosage: 25 MG, DAILY
     Route: 048
     Dates: end: 20070708
  11. AMINOLEBAN EN [Concomitant]
     Indication: ANOREXIA
     Dosage: 100 GRAM, DAILY
     Route: 048
     Dates: end: 20070708

REACTIONS (2)
  - CONSTIPATION [None]
  - HEPATIC ENCEPHALOPATHY [None]
